FAERS Safety Report 6568070-2 (Version None)
Quarter: 2010Q1

REPORT INFORMATION
  Report Type: 
  Country: None (occurrence: None)
  Receive Date: 20100129
  Receipt Date: 20100113
  Transmission Date: 20100710
  Serious: Yes (Hospitalization)
  Sender: FDA-Public Use
  Company Number: 2009AC000455

PATIENT
  Age: 76 Year
  Sex: Male

DRUGS (25)
  1. DIGOXIN [Suspect]
     Dosage: 0.125 MG;PO
     Route: 048
     Dates: start: 19870101
  2. METOPROLOL TARTRATE [Concomitant]
  3. VITAMIN B-12 [Concomitant]
  4. COLCHICINE [Concomitant]
  5. COUMADIN [Concomitant]
  6. ALLOPURINOL [Concomitant]
  7. FOLIC ACID [Concomitant]
  8. LASIX [Concomitant]
  9. GLYBURIDE [Concomitant]
  10. METFORMIN HYDROCHLORIDE [Concomitant]
  11. FINASTERIDE [Concomitant]
  12. FUROSEMIDE [Concomitant]
  13. LOVASTATIN [Concomitant]
  14. METOPROLOL TARTRATE [Concomitant]
  15. ENALAPRIL MALEATE [Concomitant]
  16. FLEXERIL [Concomitant]
  17. NASALCROM [Concomitant]
  18. ALDACTONE [Concomitant]
  19. NITROGLYCERIN [Concomitant]
  20. DOXAZOSIN MESYLATE [Concomitant]
  21. POTASSIUM [Concomitant]
  22. ATENOLOL [Concomitant]
  23. ISOSORBIDE MONONITRATE [Concomitant]
  24. IPRATROPIUM NASAL SPRAY [Concomitant]
  25. SPIRONOLACTONE [Concomitant]

REACTIONS (26)
  - ARTERIOSCLEROSIS CORONARY ARTERY [None]
  - ARTHROPATHY [None]
  - ATRIAL FIBRILLATION [None]
  - BACK PAIN [None]
  - CHOLELITHIASIS [None]
  - DIABETIC NEUROPATHY [None]
  - DIABETIC VASCULAR DISORDER [None]
  - DIPLOPIA [None]
  - DIZZINESS [None]
  - DYSPNOEA EXERTIONAL [None]
  - ELECTROCARDIOGRAM QRS COMPLEX PROLONGED [None]
  - ELECTROCARDIOGRAM ST-T SEGMENT ABNORMAL [None]
  - EYELID PTOSIS [None]
  - HEADACHE [None]
  - HIATUS HERNIA [None]
  - INJURY [None]
  - LEFT VENTRICULAR HYPERTROPHY [None]
  - MITRAL VALVE INCOMPETENCE [None]
  - MYASTHENIA GRAVIS [None]
  - PERIPHERAL ARTERY ANEURYSM [None]
  - PROSTATE CANCER [None]
  - RADICULAR PAIN [None]
  - RENAL CYST [None]
  - RENAL IMPAIRMENT [None]
  - RESPIRATORY TRACT INFECTION [None]
  - URINARY TRACT OBSTRUCTION [None]
